FAERS Safety Report 25422248 (Version 3)
Quarter: 2025Q3

REPORT INFORMATION
  Report Type: Report from Study
  Country: US (occurrence: US)
  Receive Date: 20250611
  Receipt Date: 20250701
  Transmission Date: 20251021
  Serious: Yes (Other)
  Sender: DECIPHERA PHARMACEUTICALS
  Company Number: US-DECIPHERA PHARMACEUTICALS LLC-2025US000629

PATIENT
  Age: 49 Year
  Sex: Female

DRUGS (2)
  1. ROMVIMZA [Suspect]
     Active Substance: VIMSELTINIB
     Indication: Soft tissue neoplasm
     Dosage: 30 MILLIGRAM, TWICE WEEKLY
     Route: 048
     Dates: start: 20250317, end: 202506
  2. ROMVIMZA [Suspect]
     Active Substance: VIMSELTINIB
     Indication: Connective tissue neoplasm

REACTIONS (16)
  - Neck surgery [Unknown]
  - Weight increased [Unknown]
  - Appetite disorder [Unknown]
  - Glucose tolerance impaired [Unknown]
  - Dry throat [Unknown]
  - Acne [Unknown]
  - Dry mouth [Unknown]
  - Pain in extremity [Unknown]
  - Heart rate increased [Unknown]
  - Burning sensation [Unknown]
  - Hair texture abnormal [Unknown]
  - Dry skin [Unknown]
  - Peripheral swelling [Unknown]
  - Rash [Unknown]
  - Hypertension [Unknown]
  - Drug ineffective [Unknown]

NARRATIVE: CASE EVENT DATE: 20250101
